FAERS Safety Report 8019244-5 (Version None)
Quarter: 2011Q4

REPORT INFORMATION
  Report Type: 
  Country: None (occurrence: None)
  Receive Date: 20111227
  Receipt Date: 20111214
  Transmission Date: 20120403
  Serious: Yes (Hospitalization)
  Sender: FDA-Public Use
  Company Number: UTC-013439

PATIENT
  Age: 47 Year
  Sex: Female
  Weight: 49.5 kg

DRUGS (3)
  1. LETAIRIS [Concomitant]
  2. REMODULIN [Suspect]
     Indication: PULMONARY ARTERIAL HYPERTENSION
     Dosage: 34.56 UG/KG (0.024 UG/KG, 1 IN 1 MIN), SUBCUTANEOUS
     Route: 058
     Dates: start: 20091204
  3. REVATIO [Concomitant]

REACTIONS (1)
  - INJECTION SITE ABSCESS [None]
